FAERS Safety Report 12201141 (Version 1)
Quarter: 2016Q1

REPORT INFORMATION
  Report Type: Spontaneous
  Country: US (occurrence: US)
  Receive Date: 20160322
  Receipt Date: 20160322
  Transmission Date: 20160526
  Serious: No
  Sender: FDA-Public Use
  Company Number: US-SA-2015SA094300

PATIENT
  Age: 30 Year
  Sex: Female

DRUGS (1)
  1. NASACORT ALLERGY 24HR [Suspect]
     Active Substance: TRIAMCINOLONE ACETONIDE
     Indication: MULTIPLE ALLERGIES
     Dosage: DOSE: ONE SPRAY IN EACH NOSTRIL ONCE A DAY.
     Route: 045
     Dates: start: 20150601, end: 20150604

REACTIONS (1)
  - Scab [Recovered/Resolved]

NARRATIVE: CASE EVENT DATE: 20150604
